FAERS Safety Report 4609380-5 (Version None)
Quarter: 2005Q1

REPORT INFORMATION
  Report Type: 
  Country: None (occurrence: None)
  Receive Date: 20050314
  Receipt Date: 20050310
  Transmission Date: 20050727
  Serious: Yes (Hospitalization)
  Sender: FDA-Public Use
  Company Number: A044-002-005499

PATIENT
  Sex: Female

DRUGS (2)
  1. ARICEPT [Suspect]
     Dosage: SEE IMAGE, ORAL
     Route: 048
     Dates: end: 20050101
  2. ARICEPT [Suspect]
     Dosage: SEE IMAGE, ORAL
     Route: 048
     Dates: start: 20050101, end: 20050201

REACTIONS (1)
  - CHOREA [None]
